FAERS Safety Report 13327097 (Version 2)
Quarter: 2017Q2

REPORT INFORMATION
  Report Type: Report from Study
  Country: NL (occurrence: NL)
  Receive Date: 20170313
  Receipt Date: 20170403
  Transmission Date: 20170830
  Serious: Yes (Death, Hospitalization, Other)
  Sender: FDA-Public Use
  Company Number: NL-AMGEN-NLDSL2017036532

PATIENT
  Age: 47 Year
  Sex: Male

DRUGS (1)
  1. NEULASTA [Suspect]
     Active Substance: PEGFILGRASTIM
     Indication: NEUTROPENIA
     Dosage: 0.6 ML, Q3WK
     Route: 058

REACTIONS (2)
  - Pericarditis [Unknown]
  - Death [Fatal]

NARRATIVE: CASE EVENT DATE: 201703
